FAERS Safety Report 7441989-6 (Version None)
Quarter: 2011Q2

REPORT INFORMATION
  Report Type: 
  Country: None (occurrence: None)
  Receive Date: 20110428
  Receipt Date: 20110204
  Transmission Date: 20111010
  Serious: No
  Sender: FDA-Public Use
  Company Number: US-ASTRAZENECA-2010SE14638

PATIENT
  Age: 64 Year
  Sex: Female

DRUGS (1)
  1. ZOMIG [Suspect]
     Route: 048
     Dates: end: 20100326

REACTIONS (6)
  - DRUG DOSE OMISSION [None]
  - MALAISE [None]
  - BEDRIDDEN [None]
  - INFLUENZA [None]
  - INCORRECT DOSE ADMINISTERED [None]
  - MIGRAINE [None]
